FAERS Safety Report 6104790-1 (Version None)
Quarter: 2009Q1

REPORT INFORMATION
  Report Type: 
  Country: None (occurrence: None)
  Receive Date: 20090306
  Receipt Date: 20090225
  Transmission Date: 20090719
  Serious: Yes (Other)
  Sender: FDA-Public Use
  Company Number: PHHY2009GB04688

PATIENT
  Sex: Male

DRUGS (7)
  1. CLOZARIL [Suspect]
     Indication: SCHIZOPHRENIA
     Dosage: 300 MG/DAY
     Route: 048
     Dates: start: 20060810
  2. CLOZARIL [Suspect]
     Dosage: 300 MG DAILY
     Dates: start: 20060810
  3. VALPROATE SODIUM [Suspect]
  4. FLUVOXAMINE [Concomitant]
     Dosage: 100 MG
     Dates: start: 20090112
  5. OMEPRAZOLE [Concomitant]
  6. FYBOGEL [Concomitant]
  7. NULYTELY [Concomitant]

REACTIONS (6)
  - ANTIPSYCHOTIC DRUG LEVEL INCREASED [None]
  - BLOOD SODIUM INCREASED [None]
  - BLOOD UREA INCREASED [None]
  - DIZZINESS [None]
  - FACE OEDEMA [None]
  - RENAL IMPAIRMENT [None]
